FAERS Safety Report 6289174-8 (Version None)
Quarter: 2009Q3

REPORT INFORMATION
  Report Type: 
  Country: None (occurrence: None)
  Receive Date: 20090728
  Receipt Date: 20090716
  Transmission Date: 20100115
  Serious: Yes (Hospitalization)
  Sender: FDA-Public Use
  Company Number: 2009-200919-NL

PATIENT
  Age: 32 Year
  Sex: Female

DRUGS (2)
  1. NUVARING [Suspect]
     Indication: HORMONE LEVEL ABNORMAL
     Dosage: DF
     Dates: start: 20070401, end: 20070701
  2. ESCITALOPRAM OXALATE [Concomitant]

REACTIONS (4)
  - OFF LABEL USE [None]
  - PNEUMONIA [None]
  - PULMONARY EMBOLISM [None]
  - WEIGHT INCREASED [None]
